FAERS Safety Report 7372212-9 (Version None)
Quarter: 2011Q1

REPORT INFORMATION
  Report Type: 
  Country: None (occurrence: None)
  Receive Date: 20110324
  Receipt Date: 20110315
  Transmission Date: 20110831
  Serious: Yes (Other)
  Sender: FDA-Public Use
  Company Number: US-ASTRAZENECA-2011SE14687

PATIENT
  Age: 57 Year
  Sex: Female
  Weight: 90.7 kg

DRUGS (3)
  1. ZOMIG [Suspect]
     Indication: MIGRAINE
     Dosage: TOTAL DAILY DOSE 5 MG, PRN
     Route: 048
     Dates: start: 20060101
  2. AMYTRIPTALINE [Concomitant]
     Indication: MIGRAINE PROPHYLAXIS
     Dosage: HS
     Route: 048
  3. WELLBUTRIN [Concomitant]
     Indication: DEPRESSION
     Dosage: DAILY
     Route: 048

REACTIONS (3)
  - PARAESTHESIA [None]
  - PRESYNCOPE [None]
  - DIZZINESS [None]
